FAERS Safety Report 20170597 (Version 1)
Quarter: 2021Q4

REPORT INFORMATION
  Report Type: Spontaneous
  Country: US (occurrence: None)
  Receive Date: 20211209
  Receipt Date: 20211209
  Transmission Date: 20220304
  Serious: No
  Sender: FDA-Public Use
  Company Number: None

PATIENT
  Age: 80 Year
  Sex: Female

DRUGS (1)
  1. PROLIA [Suspect]
     Active Substance: DENOSUMAB
     Dosage: OTHER QUANTITY : SYRINGE;?OTHER FREQUENCY : OTHER;?
     Route: 058
     Dates: start: 201903, end: 202109

REACTIONS (3)
  - Joint injury [None]
  - Therapy cessation [None]
  - Upper limb fracture [None]

NARRATIVE: CASE EVENT DATE: 20211209
